FAERS Safety Report 5454705-4 (Version None)
Quarter: 2007Q3

REPORT INFORMATION
  Report Type: 
  Country: None (occurrence: None)
  Receive Date: 20070917
  Receipt Date: 20060925
  Transmission Date: 20080115
  Serious: Yes (Other)
  Sender: FDA-Public Use
  Company Number: US-ASTRAZENECA-2006UW18684

PATIENT
  Age: 56 Year
  Sex: Female
  Weight: 72.6 kg

DRUGS (6)
  1. SEROQUEL [Suspect]
     Indication: BIPOLAR DISORDER
     Route: 048
     Dates: start: 20060701
  2. MEDICAL MARIJUANA [Concomitant]
  3. OMEPRAZOLE [Concomitant]
  4. EFFEXOR [Concomitant]
  5. TRILEPTAL [Concomitant]
     Route: 048
  6. LORAZEPAM [Concomitant]

REACTIONS (4)
  - ARTHRALGIA [None]
  - FATIGUE [None]
  - GLAUCOMA [None]
  - WEIGHT INCREASED [None]
